FAERS Safety Report 7081669-2 (Version None)
Quarter: 2010Q4

REPORT INFORMATION
  Report Type: 
  Country: None (occurrence: None)
  Receive Date: 20101103
  Receipt Date: 20101101
  Transmission Date: 20110411
  Serious: Yes (Other)
  Sender: FDA-Public Use
  Company Number: JP-WYE-H18410110

PATIENT
  Sex: Male
  Weight: 56 kg

DRUGS (9)
  1. IMATINIB MESYLATE [Suspect]
     Indication: CHRONIC MYELOID LEUKAEMIA
     Route: 048
     Dates: start: 20090728, end: 20101101
  2. ISOSORBIDE DINITRATE [Concomitant]
     Indication: ACUTE MYOCARDIAL INFARCTION
     Dosage: NOT PROVIDED
  3. TRIMEBUTINE MALEATE [Concomitant]
     Indication: GASTRITIS PROPHYLAXIS
     Dosage: NOT PROVIDED
  4. OLOPATADINE HYDROCHLORIDE [Concomitant]
     Indication: HYPERSENSITIVITY
     Dosage: NOT PROVIDED
     Dates: start: 20091022
  5. OLOPATADINE HYDROCHLORIDE [Concomitant]
     Indication: RASH
  6. LANSOPRAZOLE [Concomitant]
     Indication: GASTRIC ULCER
     Dosage: NOT PROVIDED
     Dates: start: 20091218
  7. MAGNESIUM OXIDE [Concomitant]
     Indication: CONSTIPATION PROPHYLAXIS
     Dosage: NOT PROVIDED
     Dates: start: 20100814
  8. ASPIRIN [Concomitant]
     Indication: ACUTE MYOCARDIAL INFARCTION
     Dosage: NOT PROVIDED
  9. ALPRAZOLAM [Concomitant]
     Indication: INSOMNIA
     Dosage: NOT PROVIDED

REACTIONS (1)
  - RECTAL CANCER RECURRENT [None]
